FAERS Safety Report 9719837 (Version 1)
Quarter: 2013Q4

REPORT INFORMATION
  Report Type: Spontaneous
  Country: JP (occurrence: JP)
  Receive Date: 20131128
  Receipt Date: 20131128
  Transmission Date: 20140711
  Serious: Yes (Other)
  Sender: FDA-Public Use
  Company Number: JP-JNJFOC-20131114142

PATIENT
  Sex: 0

DRUGS (2)
  1. GALANTAMINE HBR [Suspect]
     Indication: DEMENTIA
     Route: 048
  2. GALANTAMINE HBR [Suspect]
     Indication: DEMENTIA
     Route: 048

REACTIONS (1)
  - Inappropriate antidiuretic hormone secretion [Unknown]
